FAERS Safety Report 16465643 (Version 1)
Quarter: 2019Q2

REPORT INFORMATION
  Report Type: Spontaneous
  Country: ES (occurrence: ES)
  Receive Date: 20190621
  Receipt Date: 20190621
  Transmission Date: 20190711
  Serious: Yes (Hospitalization, Other)
  Sender: FDA-Public Use
  Company Number: ES-ASTRAZENECA-2019SE88991

PATIENT
  Age: 87 Year
  Sex: Female

DRUGS (13)
  1. METHOTREXATE. [Interacting]
     Active Substance: METHOTREXATE
     Indication: RHEUMATOID ARTHRITIS
     Dosage: 15 MG/WEEKLY DURING THE LAST 7 YEARS
     Route: 065
  2. FOLIC ACID. [Concomitant]
     Active Substance: FOLIC ACID
     Dosage: 5 MG/WEEKLY
  3. ATORVASTATIN [Concomitant]
     Active Substance: ATORVASTATIN
  4. OMEPRAZOLE. [Suspect]
     Active Substance: OMEPRAZOLE
     Route: 048
  5. GALANTAMINE. [Concomitant]
     Active Substance: GALANTAMINE
  6. DENOSUMAB [Concomitant]
     Active Substance: DENOSUMAB
  7. ACETYLSALICYLIC ACID [Concomitant]
     Active Substance: ASPIRIN
  8. LORMETAZEPAM [Concomitant]
     Active Substance: LORMETAZEPAM
  9. FUROSEMIDE. [Concomitant]
     Active Substance: FUROSEMIDE
  10. ALOPURINOL [Concomitant]
     Active Substance: ALLOPURINOL
  11. RISPERIDONE. [Concomitant]
     Active Substance: RISPERIDONE
  12. METHYLPREDNISOLONE. [Interacting]
     Active Substance: METHYLPREDNISOLONE
     Route: 065
  13. CALCIFEDIOL [Concomitant]
     Active Substance: CALCIFEDIOL

REACTIONS (6)
  - Pancytopenia [Recovered/Resolved]
  - Medication error [Unknown]
  - Mucosal inflammation [Recovered/Resolved]
  - Hepatitis [Recovered/Resolved]
  - Drug interaction [Unknown]
  - Toxicity to various agents [Unknown]
